FAERS Safety Report 5831325-0 (Version None)
Quarter: 2008Q3

REPORT INFORMATION
  Report Type: 
  Country: None (occurrence: None)
  Receive Date: 20080801
  Receipt Date: 20080721
  Transmission Date: 20090109
  Serious: Yes (Other)
  Sender: FDA-Public Use
  Company Number: US-PFIZER INC-2008032176

PATIENT
  Sex: Female
  Weight: 68.7 kg

DRUGS (5)
  1. LYRICA [Suspect]
     Indication: FIBROMYALGIA
     Route: 048
     Dates: start: 20080301, end: 20080301
  2. MEDROL [Suspect]
     Indication: HYPOAESTHESIA
  3. LISINOPRIL [Concomitant]
  4. FUROSEMIDE [Concomitant]
     Route: 048
  5. TOPAMAX [Concomitant]

REACTIONS (8)
  - ACTIVITIES OF DAILY LIVING IMPAIRED [None]
  - ANORECTAL DISORDER [None]
  - HYPOAESTHESIA [None]
  - INTESTINAL FUNCTIONAL DISORDER [None]
  - MUSCLE SPASMS [None]
  - MUSCLE TWITCHING [None]
  - PARAESTHESIA [None]
  - SPINAL OSTEOARTHRITIS [None]
